FAERS Safety Report 20901775 (Version 1)
Quarter: 2022Q2

REPORT INFORMATION
  Report Type: Spontaneous
  Country: US (occurrence: None)
  Receive Date: 20220531
  Receipt Date: 20220531
  Transmission Date: 20220721
  Serious: Yes (unspecified)
  Sender: FDA-Public Use
  Company Number: None

PATIENT
  Age: 25 Year
  Sex: Female
  Weight: 65.77 kg

DRUGS (3)
  1. KYLEENA [Suspect]
     Active Substance: LEVONORGESTREL
  2. ALLEGRA [Concomitant]
     Active Substance: FEXOFENADINE HYDROCHLORIDE
  3. flonaise [Concomitant]

REACTIONS (3)
  - Pregnancy with contraceptive device [None]
  - Maternal exposure timing unspecified [None]
  - Maternal drugs affecting foetus [None]

NARRATIVE: CASE EVENT DATE: 20220526
